FAERS Safety Report 24912419 (Version 1)
Quarter: 2025Q1

REPORT INFORMATION
  Report Type: Other
  Country: US (occurrence: US)
  Receive Date: 20250131
  Receipt Date: 20250131
  Transmission Date: 20250409
  Serious: No
  Sender: ELITE
  Company Number: US-ELITEPHARMA-2024ELREG00159

PATIENT
  Age: 37 Year
  Sex: Female
  Weight: 160 kg

DRUGS (1)
  1. DEXTROAMPHETAMINE SACCHARATE, AMPHETAMINE ASPARTATE, DEXTROAMPHETAMINE [Suspect]
     Active Substance: AMPHETAMINE ASPARTATE\AMPHETAMINE SULFATE\DEXTROAMPHETAMINE SACCHARATE\DEXTROAMPHETAMINE SULFATE
     Indication: Attention deficit hyperactivity disorder
     Route: 048

REACTIONS (17)
  - Disturbance in attention [Not Recovered/Not Resolved]
  - Crying [Not Recovered/Not Resolved]
  - Distractibility [Not Recovered/Not Resolved]
  - Flat affect [Not Recovered/Not Resolved]
  - Fear [Not Recovered/Not Resolved]
  - Feeling of despair [Not Recovered/Not Resolved]
  - Panic attack [Not Recovered/Not Resolved]
  - Confusional state [Not Recovered/Not Resolved]
  - Impaired work ability [Not Recovered/Not Resolved]
  - Anxiety [Not Recovered/Not Resolved]
  - Dizziness [Not Recovered/Not Resolved]
  - Asthenia [Not Recovered/Not Resolved]
  - Nausea [Not Recovered/Not Resolved]
  - Fatigue [Not Recovered/Not Resolved]
  - Depression [Not Recovered/Not Resolved]
  - Therapeutic response changed [Unknown]
  - Product substitution issue [Unknown]
